FAERS Safety Report 7417573-7 (Version None)
Quarter: 2011Q2

REPORT INFORMATION
  Report Type: 
  Country: None (occurrence: None)
  Receive Date: 20110415
  Receipt Date: 20110406
  Transmission Date: 20111010
  Serious: Yes (Other)
  Sender: FDA-Public Use
  Company Number: IE-SANOFI-AVENTIS-2011SA020916

PATIENT
  Sex: Male

DRUGS (2)
  1. MULTAQ [Suspect]
     Route: 048
  2. BISOPROLOL [Concomitant]

REACTIONS (1)
  - HEART RATE INCREASED [None]
